FAERS Safety Report 6829906-0 (Version None)
Quarter: 2010Q3

REPORT INFORMATION
  Report Type: 
  Country: None (occurrence: None)
  Receive Date: 20100711
  Receipt Date: 20100326
  Transmission Date: 20110219
  Serious: No
  Sender: FDA-Public Use
  Company Number: US-ALLERGAN-1004020US

PATIENT
  Age: 51 Year
  Sex: Female

DRUGS (2)
  1. LATISSE [Suspect]
     Indication: TRICHIASIS
     Dosage: 1 GTT, QHS
     Dates: start: 20091201, end: 20100201
  2. OTC SALINE EYE DROPS [Concomitant]
     Indication: PRODUCT USED FOR UNKNOWN INDICATION
     Dosage: UNK

REACTIONS (4)
  - EYE IRRITATION [None]
  - EYE PRURITUS [None]
  - FACE OEDEMA [None]
  - WRONG TECHNIQUE IN DRUG USAGE PROCESS [None]
